FAERS Safety Report 23662655 (Version 1)
Quarter: 2024Q1

REPORT INFORMATION
  Report Type: Spontaneous
  Country: US (occurrence: None)
  Receive Date: 20240321
  Receipt Date: 20240321
  Transmission Date: 20240409
  Serious: Yes (Hospitalization, Other)
  Sender: FDA-Public Use
  Company Number: None

PATIENT
  Age: 51 Year
  Sex: Female
  Weight: 83.25 kg

DRUGS (11)
  1. CLONAZEPAM [Suspect]
     Active Substance: CLONAZEPAM
     Indication: Insomnia
     Dosage: OTHER QUANTITY : 1 TABLET(S);?FREQUENCY : AS NEEDED;?
     Route: 048
     Dates: start: 20010415, end: 20240303
  2. ZINC [Concomitant]
     Active Substance: PYRITHIONE ZINC\ZINC\ZINC CHLORIDE
  3. MAGNESIUM [Concomitant]
     Active Substance: MAGNESIUM
  4. cod live oil [Concomitant]
  5. women^s health multivitamin [Concomitant]
  6. VITAMIN D3 [Concomitant]
     Active Substance: CHOLECALCIFEROL
  7. BLUE GREEN ALGAE [Concomitant]
  8. E [Concomitant]
  9. PRASTERONE [Concomitant]
     Active Substance: PRASTERONE
  10. EVENING PRIMROSE [Concomitant]
  11. PROBIOTICS NOS [Concomitant]
     Active Substance: PROBIOTICS NOS

REACTIONS (7)
  - Memory impairment [None]
  - Dizziness [None]
  - Palpitations [None]
  - Insomnia [None]
  - Balance disorder [None]
  - Affective disorder [None]
  - Asthenia [None]

NARRATIVE: CASE EVENT DATE: 20240303
